FAERS Safety Report 9509136 (Version 2)
Quarter: 2013Q3

REPORT INFORMATION
  Report Type: Spontaneous
  Country: US (occurrence: US)
  Receive Date: 20130909
  Receipt Date: 20130909
  Transmission Date: 20140515
  Serious: No
  Sender: FDA-Public Use
  Company Number: US-BRISTOL-MYERS SQUIBB COMPANY-17347774

PATIENT
  Age: 51 Year
  Sex: Female

DRUGS (2)
  1. ABILIFY [Suspect]
     Dosage: LAST DOSE OF THE ABILIFY 04FEB2013
  2. ALPRAZOLAM [Concomitant]
     Indication: ANXIETY
     Dosage: 8 YEARS

REACTIONS (5)
  - Menstrual disorder [Unknown]
  - Night sweats [Unknown]
  - Hot flush [Unknown]
  - Crying [Unknown]
  - Feeling abnormal [Unknown]
